FAERS Safety Report 13621008 (Version 1)
Quarter: 2017Q2

REPORT INFORMATION
  Report Type: Spontaneous
  Country: MX (occurrence: MX)
  Receive Date: 20170607
  Receipt Date: 20170607
  Transmission Date: 20170830
  Serious: Yes (Other)
  Sender: FDA-Public Use
  Company Number: MX-PFIZER INC-2017249224

PATIENT
  Age: 67 Year
  Sex: Female

DRUGS (1)
  1. LYRICA [Suspect]
     Active Substance: PREGABALIN
     Indication: PAIN
     Dosage: 150 MG, DAILY
     Dates: start: 2015

REACTIONS (1)
  - Monoplegia [Not Recovered/Not Resolved]
